FAERS Safety Report 25019000 (Version 3)
Quarter: 2025Q2

REPORT INFORMATION
  Report Type: Report from Study
  Country: US (occurrence: US)
  Receive Date: 20250227
  Receipt Date: 20250613
  Transmission Date: 20250716
  Serious: Yes (Hospitalization)
  Sender: AVADEL CNS PHARMACEUTICALS, LLC
  Company Number: US-AVADEL CNS PHARMACEUTICALS, LLC-2025AVA00255

PATIENT
  Age: 80 Year
  Sex: Female

DRUGS (11)
  1. LUMRYZ [Suspect]
     Active Substance: SODIUM OXYBATE
     Indication: Narcolepsy
     Dosage: 4.5 G, ONCE NIGHTLY
     Route: 048
     Dates: start: 20241223, end: 2025
  2. LUMRYZ [Suspect]
     Active Substance: SODIUM OXYBATE
     Indication: Narcolepsy
     Dosage: 7.5 G, ONCE NIGHTLY
     Route: 048
     Dates: start: 2025, end: 20250408
  3. LUMRYZ [Suspect]
     Active Substance: SODIUM OXYBATE
     Indication: Narcolepsy
     Dosage: 9 G, ONCE NIGHTLY
     Route: 048
     Dates: start: 20250409, end: 202504
  4. ADDERALL [Suspect]
     Active Substance: AMPHETAMINE ASPARTATE\AMPHETAMINE SULFATE\DEXTROAMPHETAMINE SACCHARATE\DEXTROAMPHETAMINE SULFATE
  5. FISH OIL [Concomitant]
     Active Substance: FISH OIL
  6. ADEMETIONINE [Concomitant]
     Active Substance: ADEMETIONINE
  7. OREGANO LEAF OIL [Concomitant]
     Active Substance: OREGANO LEAF OIL
  8. OLEA EUROPAEA LEAF [Concomitant]
     Active Substance: OLEA EUROPAEA LEAF
  9. VITAMINS NOS [Concomitant]
     Active Substance: VITAMINS
  10. ^CIRCUMIN^ [Concomitant]
  11. EXCEDRIN [Concomitant]
     Active Substance: ACETAMINOPHEN\ASPIRIN\CAFFEINE

REACTIONS (12)
  - Unresponsive to stimuli [Recovered/Resolved]
  - Initial insomnia [Not Recovered/Not Resolved]
  - Brain fog [Not Recovered/Not Resolved]
  - Insomnia [Not Recovered/Not Resolved]
  - Fatigue [Unknown]
  - Somnolence [Unknown]
  - Nocturia [Recovered/Resolved]
  - Dizziness [Unknown]
  - Somnambulism [Unknown]
  - Drug ineffective [Recovered/Resolved]
  - Intentional dose omission [Recovered/Resolved]
  - Wrong technique in product usage process [Recovered/Resolved]

NARRATIVE: CASE EVENT DATE: 20241223
